FAERS Safety Report 4522861-8 (Version None)
Quarter: 2004Q4

REPORT INFORMATION
  Report Type: 
  Country: None (occurrence: None)
  Receive Date: 20041207
  Receipt Date: 20041126
  Transmission Date: 20050328
  Serious: No
  Sender: FDA-Public Use
  Company Number: 2004-122943-NL

PATIENT
  Age: 28 Year
  Sex: Female

DRUGS (3)
  1. MENOTROPINS [Suspect]
     Dosage: DF
  2. CLOMIPHENE [Suspect]
  3. CABERGOLINE [Suspect]

REACTIONS (3)
  - ABORTION SPONTANEOUS INCOMPLETE [None]
  - DRUG EXPOSURE DURING PREGNANCY [None]
  - ECTOPIC PREGNANCY [None]
